FAERS Safety Report 6625514-5 (Version None)
Quarter: 2010Q1

REPORT INFORMATION
  Report Type: 
  Country: None (occurrence: None)
  Receive Date: 20100223
  Receipt Date: 20091110
  Transmission Date: 20100710
  Serious: Yes (Other)
  Sender: FDA-Public Use
  Company Number: 8053950

PATIENT
  Sex: Female

DRUGS (4)
  1. CERTOLIZUMAB PEGOL (UCB, INC) [Suspect]
     Indication: CROHN'S DISEASE
     Dosage: 400 MG MONTHLY SUBCUTANEOUS
     Route: 058
     Dates: start: 20090522
  2. PREDNISONE [Suspect]
     Dosage: ORAL
     Route: 048
  3. LISINOPRIL [Concomitant]
  4. PREDNISONE [Concomitant]

REACTIONS (2)
  - BLOOD PRESSURE INCREASED [None]
  - DIABETES MELLITUS [None]
